FAERS Safety Report 16764503 (Version 5)
Quarter: 2020Q1

REPORT INFORMATION
  Report Type: Report from Study
  Country: US (occurrence: US)
  Receive Date: 20190902
  Receipt Date: 20200217
  Transmission Date: 20200409
  Serious: Yes (Death, Hospitalization, Other)
  Sender: FDA-Public Use
  Company Number: PHEH2019US036390

PATIENT
  Age: 76 Year
  Sex: Male
  Weight: 76.65 kg

DRUGS (2)
  1. TREPROSTINIL. [Suspect]
     Active Substance: TREPROSTINIL
     Dosage: 42 NG/KG/MIN, CONTINUOUS
     Route: 042
     Dates: start: 20190530
  2. TREPROSTINIL. [Suspect]
     Active Substance: TREPROSTINIL
     Indication: PULMONARY ARTERIAL HYPERTENSION
     Dosage: 42 NG/KG/MIN, CONTINUOUS
     Route: 042
     Dates: start: 20190530

REACTIONS (5)
  - Staphylococcal infection [Unknown]
  - Gout [Unknown]
  - Fluid overload [Unknown]
  - Death [Fatal]
  - Hypoacusis [Unknown]

NARRATIVE: CASE EVENT DATE: 20200127
